FAERS Safety Report 14301783 (Version 3)
Quarter: 2018Q1

REPORT INFORMATION
  Report Type: Spontaneous
  Country: US (occurrence: US)
  Receive Date: 20171219
  Receipt Date: 20180206
  Transmission Date: 20180509
  Serious: Yes (Hospitalization, Other)
  Sender: FDA-Public Use
  Company Number: US-AMGEN-USASP2017185585

PATIENT
  Age: 6 Month
  Sex: Male
  Weight: 6.3 kg

DRUGS (20)
  1. CINACALCET HCL [Suspect]
     Active Substance: CINACALCET HYDROCHLORIDE
     Dosage: 7.8 MG, QD
     Route: 048
  2. CINACALCET HCL [Suspect]
     Active Substance: CINACALCET HYDROCHLORIDE
     Dosage: 2.4 MG, QD
     Route: 048
  3. CALCIUM [Concomitant]
     Active Substance: CALCIUM
     Dosage: 603 MG, QD
  4. PHOSPHORUS [Concomitant]
     Active Substance: PHOSPHORUS
     Dosage: 437 MG, QD
  5. CINACALCET HCL [Suspect]
     Active Substance: CINACALCET HYDROCHLORIDE
     Dosage: 5.4 MG, QD
     Route: 048
  6. CALCIUM [Concomitant]
     Active Substance: CALCIUM
     Dosage: 240 MG, QD
  7. CINACALCET HCL [Suspect]
     Active Substance: CINACALCET HYDROCHLORIDE
     Dosage: 7.2 MG, QD
     Route: 048
  8. CINACALCET HCL [Suspect]
     Active Substance: CINACALCET HYDROCHLORIDE
     Dosage: 3.3 MG, QD
     Route: 048
  9. CINACALCET HCL [Suspect]
     Active Substance: CINACALCET HYDROCHLORIDE
     Dosage: 6 MG, QD
     Route: 048
  10. CINACALCET HCL [Suspect]
     Active Substance: CINACALCET HYDROCHLORIDE
     Dosage: 6.6 MG, QD
     Route: 048
  11. CALCIUM [Concomitant]
     Active Substance: CALCIUM
     Dosage: 600 MG, QD
  12. VITAMIN D [Concomitant]
     Active Substance: CHOLECALCIFEROL
     Dosage: 260 UNIT, QD
  13. CALCITRIOL. [Concomitant]
     Active Substance: CALCITRIOL
     Dosage: 0.15 MUG, QD
  14. CALCIUM [Concomitant]
     Active Substance: CALCIUM
     Dosage: 280 MG, QD
  15. CALCIUM [Concomitant]
     Active Substance: CALCIUM
     Dosage: 780 MG, QD
  16. CINACALCET HCL [Suspect]
     Active Substance: CINACALCET HYDROCHLORIDE
     Dosage: 6.9 MG, QD
     Route: 048
  17. CINACALCET HCL [Suspect]
     Active Substance: CINACALCET HYDROCHLORIDE
     Dosage: 4.8 MG, QD
     Route: 048
  18. CINACALCET HCL [Suspect]
     Active Substance: CINACALCET HYDROCHLORIDE
     Indication: HYPERPARATHYROIDISM SECONDARY
     Dosage: 3 MG, QD (0.4 MG/KG/DAY)
     Route: 048
  19. CINACALCET HCL [Suspect]
     Active Substance: CINACALCET HYDROCHLORIDE
     Dosage: 6.9 MG, QD
     Route: 048
  20. CINACALCET HCL [Suspect]
     Active Substance: CINACALCET HYDROCHLORIDE
     Dosage: 3.5 MG, QD
     Route: 048

REACTIONS (6)
  - Blood phosphorus increased [Recovered/Resolved]
  - Blood parathyroid hormone increased [Recovered/Resolved]
  - Hypocalcaemia [Recovered/Resolved]
  - Rebound effect [Recovered/Resolved]
  - Parathyroid hyperplasia [Unknown]
  - Off label use [Unknown]
